FAERS Safety Report 8525401-1 (Version None)
Quarter: 2012Q3

REPORT INFORMATION
  Report Type: 
  Country: None (occurrence: None)
  Receive Date: 20120720
  Receipt Date: 20120711
  Transmission Date: 20120928
  Serious: Yes (Hospitalization)
  Sender: FDA-Public Use
  Company Number: FR-VERTEX PHARMACEUTICALS INC.-AE-2011-001395

PATIENT
  Sex: Male
  Weight: 60 kg

DRUGS (8)
  1. IRBESARTAN [Concomitant]
  2. PEGASYS [Concomitant]
     Route: 058
     Dates: start: 20110818, end: 20120208
  3. ASPIRIN [Concomitant]
  4. LYRICA [Concomitant]
  5. NEXIUM [Concomitant]
  6. COPEGUS [Concomitant]
     Indication: HEPATITIS C
     Route: 048
     Dates: end: 20120208
  7. VX-950 [Suspect]
     Indication: HEPATITIS C
     Route: 048
     Dates: start: 20110309, end: 20110601
  8. PEGASYS [Concomitant]
     Indication: HEPATITIS C
     Route: 058

REACTIONS (5)
  - STAPHYLOCOCCAL SEPSIS [None]
  - LYMPHADENOPATHY MEDIASTINAL [None]
  - CRYOGLOBULINAEMIA [None]
  - LUNG DISORDER [None]
  - PYREXIA [None]
